FAERS Safety Report 25439514 (Version 1)
Quarter: 2025Q2

REPORT INFORMATION
  Report Type: Spontaneous
  Country: ZA (occurrence: ZA)
  Receive Date: 20250616
  Receipt Date: 20250616
  Transmission Date: 20250717
  Serious: Yes (Hospitalization)
  Sender: BAYER HEALTHCARE PHARMACEUTICALS INC.
  Company Number: ZA-BAYER-2025A071995

PATIENT
  Age: 56 Year
  Sex: Female

DRUGS (25)
  1. ANGELIQ [Suspect]
     Active Substance: DROSPIRENONE\ESTRADIOL
     Dosage: 1 DF, QD
     Route: 048
  2. Allecet [Concomitant]
     Dosage: 10 MG, QD
     Route: 048
  3. Ponac [Concomitant]
     Dosage: 500 MG, TID
     Route: 048
  4. ACETAMINOPHEN\ORPHENADRINE CITRATE [Concomitant]
     Active Substance: ACETAMINOPHEN\ORPHENADRINE CITRATE
     Dosage: 2 DF, TID
     Route: 048
  5. LORATADINE [Concomitant]
     Active Substance: LORATADINE
     Dosage: 10 MG, QD
     Route: 048
  6. LAMOTRIGINE [Concomitant]
     Active Substance: LAMOTRIGINE
     Dosage: 200 MG, BID
     Route: 048
  7. VENLAFAXINE HYDROCHLORIDE [Concomitant]
     Active Substance: VENLAFAXINE HYDROCHLORIDE
     Dosage: 150 MG, QD
     Route: 048
  8. RISPERIDONE [Concomitant]
     Active Substance: RISPERIDONE
     Dosage: 0.5 MG, QD
     Route: 048
  9. Novapraz xr [Concomitant]
     Dosage: 1 MG, QD
     Route: 048
  10. GABAPENTIN [Concomitant]
     Active Substance: GABAPENTIN
     Dosage: 100 MG, TID
     Route: 048
  11. Lipogen [Concomitant]
     Dosage: 10 MG, QD
     Route: 048
  12. Sandoz co amoxyclav [Concomitant]
     Dosage: 1000 MG, BID
     Route: 048
  13. PROBIOTICS NOS [Concomitant]
     Active Substance: PROBIOTICS NOS
     Dosage: 1 DF, QD
     Route: 048
  14. MUPIROCIN [Concomitant]
     Active Substance: MUPIROCIN
     Dosage: 20 MG, BID
     Route: 061
  15. SULFAMETHOXAZOLE\TRIMETHOPRIM [Concomitant]
     Active Substance: SULFAMETHOXAZOLE\TRIMETHOPRIM
     Dosage: 960 MG, QD
     Route: 048
  16. Primeve plus [Concomitant]
     Dosage: 1 DF, QD
     Route: 048
  17. AMMONIUM CHLORIDE\DIPHENHYDRAMINE\ETOFYLLINE\SODIUM CITRATE\THEOPHYLLI [Concomitant]
     Active Substance: AMMONIUM CHLORIDE\DIPHENHYDRAMINE\ETOFYLLINE\SODIUM CITRATE\THEOPHYLLINE
     Route: 048
  18. Duro Tuss Linctus [Concomitant]
     Route: 048
  19. ACETAMINOPHEN\CODEINE\IBUPROFEN [Concomitant]
     Active Substance: ACETAMINOPHEN\CODEINE\IBUPROFEN
     Route: 048
  20. SERTRALINE HYDROCHLORIDE [Concomitant]
     Active Substance: SERTRALINE HYDROCHLORIDE
     Dosage: 50 MG, QD
     Route: 048
  21. TOPIRAMATE [Concomitant]
     Active Substance: TOPIRAMATE
     Dosage: 25 MG, BID
     Route: 048
  22. QUETIAPINE [Concomitant]
     Active Substance: QUETIAPINE
     Dosage: 25 MG, QD
     Route: 048
  23. OXAZEPAM [Concomitant]
     Active Substance: OXAZEPAM
     Dosage: 30 MG, QD
     Route: 048
  24. ATIVAN [Concomitant]
     Active Substance: LORAZEPAM
  25. ALPRAZOLAM [Concomitant]
     Active Substance: ALPRAZOLAM
     Dosage: 0.5 MG, QD
     Route: 048

REACTIONS (1)
  - Mental disorder [None]
